FAERS Safety Report 23645251 (Version 4)
Quarter: 2024Q3

REPORT INFORMATION
  Report Type: Spontaneous
  Country: GB (occurrence: GB)
  Receive Date: 20240318
  Receipt Date: 20240724
  Transmission Date: 20241017
  Serious: Yes (Other)
  Sender: JOHNSON AND JOHNSON
  Company Number: GB-BAYER-2024A039219

PATIENT
  Age: 43 Year
  Sex: Female

DRUGS (1)
  1. XARELTO [Suspect]
     Active Substance: RIVAROXABAN
     Indication: Pulmonary embolism
     Dosage: UNK
     Route: 048

REACTIONS (12)
  - Internal haemorrhage [Unknown]
  - Haemorrhage [Recovered/Resolved]
  - Post-traumatic stress disorder [Not Recovered/Not Resolved]
  - Tachycardia [Unknown]
  - Renal failure [Unknown]
  - Contusion [Unknown]
  - Weight increased [Unknown]
  - Insomnia [Not Recovered/Not Resolved]
  - Anxiety disorder [Not Recovered/Not Resolved]
  - Fear [Not Recovered/Not Resolved]
  - Mental disorder [Not Recovered/Not Resolved]
  - Learning disorder [Unknown]

NARRATIVE: CASE EVENT DATE: 20210501
